FAERS Safety Report 24548542 (Version 1)
Quarter: 2024Q4

REPORT INFORMATION
  Report Type: Report from Study
  Country: FR (occurrence: FR)
  Receive Date: 20241025
  Receipt Date: 20241025
  Transmission Date: 20250115
  Serious: No
  Sender: SANDOZ
  Company Number: FR-SANDOZ-SDZ2024FR089555

PATIENT
  Age: 15 Year
  Sex: Male

DRUGS (1)
  1. OMNITROPE [Suspect]
     Active Substance: SOMATROPIN
     Indication: Product used for unknown indication
     Dosage: (2.6 MG/D 7D/7)
     Route: 058
     Dates: start: 20241007

REACTIONS (4)
  - Incorrect dose administered [Unknown]
  - Device difficult to use [Unknown]
  - Liquid product physical issue [Unknown]
  - Device issue [Unknown]

NARRATIVE: CASE EVENT DATE: 20241020
